FAERS Safety Report 18285044 (Version 2)
Quarter: 2021Q1

REPORT INFORMATION
  Report Type: Report from Study
  Country: US (occurrence: US)
  Receive Date: 20200918
  Receipt Date: 20210218
  Transmission Date: 20210419
  Serious: Yes (Other)
  Sender: FDA-Public Use
  Company Number: US-TEVA-2020-US-1829279

PATIENT
  Age: 70 Year
  Sex: Male

DRUGS (13)
  1. SAW PALMETTO [Suspect]
     Active Substance: HERBALS\SAW PALMETTO
     Route: 065
  2. COPAXONE [Suspect]
     Active Substance: GLATIRAMER ACETATE
     Indication: MULTIPLE SCLEROSIS
     Dosage: COPAXONE 40 MG THREE TIMES PER WEEK
     Route: 058
     Dates: start: 20180217
  3. BAYER LOW [Concomitant]
  4. VITAMIN D3 [Concomitant]
     Active Substance: CHOLECALCIFEROL
  5. BENADRYL [Concomitant]
     Active Substance: DIPHENHYDRAMINE HYDROCHLORIDE
  6. CYMBALTA [Concomitant]
     Active Substance: DULOXETINE HYDROCHLORIDE
  7. FISH OIL [Concomitant]
     Active Substance: FISH OIL
  8. ZINC. [Concomitant]
     Active Substance: ZINC
  9. LIPITOR [Concomitant]
     Active Substance: ATORVASTATIN CALCIUM
  10. ZYRTEC [Concomitant]
     Active Substance: CETIRIZINE HYDROCHLORIDE
  11. ALEVE [Concomitant]
     Active Substance: NAPROXEN SODIUM
  12. BACLOFEN. [Concomitant]
     Active Substance: BACLOFEN
  13. IRON [Concomitant]
     Active Substance: IRON

REACTIONS (3)
  - Fatigue [Not Recovered/Not Resolved]
  - Prostate cancer [Not Recovered/Not Resolved]
  - Loss of personal independence in daily activities [Not Recovered/Not Resolved]
